FAERS Safety Report 7023623-2 (Version None)
Quarter: 2010Q3

REPORT INFORMATION
  Report Type: 
  Country: None (occurrence: None)
  Receive Date: 20100930
  Receipt Date: 20100930
  Transmission Date: 20110219
  Serious: Yes (Hospitalization)
  Sender: FDA-Public Use
  Company Number: None

PATIENT
  Age: 59 Year
  Sex: Female
  Weight: 45 kg

DRUGS (2)
  1. FOSAMAX [Suspect]
     Indication: OSTEOPOROSIS PROPHYLAXIS
     Dosage: 1 TABLET WEEKLY BUCCAL
     Route: 002
     Dates: start: 20040622, end: 20060810
  2. BONIVA [Suspect]
     Indication: OSTEOPOROSIS PROPHYLAXIS
     Dosage: 1 TABLET MONTHLY BUCCAL
     Route: 002
     Dates: start: 20060811, end: 20100301

REACTIONS (1)
  - FEMUR FRACTURE [None]
